FAERS Safety Report 4695860-3 (Version None)
Quarter: 2005Q2

REPORT INFORMATION
  Report Type: 
  Country: None (occurrence: None)
  Receive Date: 20050621
  Receipt Date: 20040601
  Transmission Date: 20051028
  Serious: Yes (Death, Hospitalization)
  Sender: FDA-Public Use
  Company Number: ES-SANOFI-SYNTHELABO-F01200401286

PATIENT
  Sex: Male
  Weight: 72 kg

DRUGS (6)
  1. OXALIPLATIN [Suspect]
     Indication: COLORECTAL CANCER METASTATIC
     Route: 042
     Dates: start: 20040517, end: 20040517
  2. CAPECITABINE [Suspect]
     Dosage: 1000 MG/M2 TWICE DAILY FROM DAY 1 TO DAY 15, Q3W
     Route: 048
     Dates: start: 20040517, end: 20040531
  3. ORALDINE [Concomitant]
     Dosage: 20 ML
     Route: 048
     Dates: start: 20040517
  4. MYCOSTATIN [Concomitant]
     Dosage: 20 ML
     Route: 048
     Dates: start: 20040517
  5. MOTILIUM [Concomitant]
     Dosage: 3 TABLETS
     Route: 048
     Dates: start: 20040517
  6. AAS [Concomitant]
     Dosage: 100 MG
     Route: 048

REACTIONS (5)
  - DIARRHOEA [None]
  - MUCOSAL INFLAMMATION [None]
  - RENAL FAILURE ACUTE [None]
  - SEPSIS [None]
  - VOMITING [None]
